FAERS Safety Report 5079551-5 (Version None)
Quarter: 2006Q3

REPORT INFORMATION
  Report Type: 
  Country: None (occurrence: None)
  Receive Date: 20060808
  Receipt Date: 20060720
  Transmission Date: 20061208
  Serious: Yes (Hospitalization, Other)
  Sender: FDA-Public Use
  Company Number: US200606002872

PATIENT
  Age: 41 Year
  Sex: Female
  Weight: 68 kg

DRUGS (2)
  1. ZYPREXA [Suspect]
     Dosage: 5 MG
     Dates: start: 20001101
  2. CELEXA [Concomitant]

REACTIONS (11)
  - BILIARY TRACT DISORDER [None]
  - CHOLELITHIASIS [None]
  - DIABETES MELLITUS [None]
  - HEPATITIS VIRAL [None]
  - HYPERGLYCAEMIA [None]
  - HYPERTENSION [None]
  - HYPOGLYCAEMIA [None]
  - OBESITY [None]
  - PANCREATITIS [None]
  - VISION BLURRED [None]
  - WEIGHT DECREASED [None]
